FAERS Safety Report 8914757 (Version 1)
Quarter: 2012Q4

REPORT INFORMATION
  Report Type: 
  Country: US (occurrence: US)
  Receive Date: 20121119
  Receipt Date: 20121119
  Transmission Date: 20130627
  Serious: No
  Sender: FDA-Public Use
  Company Number: US-BAYER-2012-119994

PATIENT
  Sex: Female

DRUGS (3)
  1. NATAZIA [Suspect]
     Indication: MENORRHAGIA
     Dosage: UNK
     Dates: start: 201210
  2. ALPRAZOLAM [Suspect]
     Dosage: UNK
     Dates: start: 201210
  3. PROZAC [Suspect]
     Dosage: UNK
     Dates: start: 201210

REACTIONS (3)
  - Swelling [None]
  - Gastrointestinal pain [None]
  - Diarrhoea [None]
